FAERS Safety Report 6976085-5 (Version None)
Quarter: 2010Q3

REPORT INFORMATION
  Report Type: 
  Country: None (occurrence: None)
  Receive Date: 20100910
  Receipt Date: 20100831
  Transmission Date: 20110219
  Serious: Yes (Other)
  Sender: FDA-Public Use
  Company Number: CHPA2010US08961

PATIENT
  Age: 87 Year
  Sex: Female
  Weight: 58.957 kg

DRUGS (8)
  1. SLOW FE BROWN (NCH) [Suspect]
     Indication: ANAEMIA
     Dosage: 284 MG, QD
     Route: 048
  2. SLOW FE BROWN (NCH) [Suspect]
     Dosage: 142 MG, TID
     Route: 048
     Dates: end: 20100602
  3. SLOW FE BROWN (NCH) [Suspect]
     Dosage: 142 MG, QD
     Route: 048
  4. GLYBURIDE [Concomitant]
     Indication: DIABETES MELLITUS
     Dosage: 2.5 MG, QD
     Route: 048
  5. METFORMIN [Concomitant]
     Indication: DIABETES MELLITUS
     Dosage: 5 MG, QD
     Route: 048
  6. NORVASC [Concomitant]
     Indication: HYPERTENSION
     Dosage: 5 MG, QD
     Route: 048
  7. BENICAR [Concomitant]
     Indication: HYPERTENSION
     Dosage: 20 MG, QD
     Route: 048
  8. PROTONIX [Concomitant]
     Indication: GASTROINTESTINAL DISORDER
     Dosage: 40 MG, QD
     Route: 048

REACTIONS (13)
  - ABDOMINAL PAIN UPPER [None]
  - BIOPSY BONE MARROW [None]
  - CHANGE OF BOWEL HABIT [None]
  - CHEST PAIN [None]
  - CHRONIC MYELOMONOCYTIC LEUKAEMIA [None]
  - CONSTIPATION [None]
  - DECREASED APPETITE [None]
  - DRUG INEFFECTIVE [None]
  - FATIGUE [None]
  - FEELING ABNORMAL [None]
  - HEADACHE [None]
  - OVERDOSE [None]
  - WEIGHT DECREASED [None]
